FAERS Safety Report 21597820 (Version 3)
Quarter: 2023Q1

REPORT INFORMATION
  Report Type: Spontaneous
  Country: BR (occurrence: BR)
  Receive Date: 20221115
  Receipt Date: 20230103
  Transmission Date: 20230417
  Serious: No
  Sender: FDA-Public Use
  Company Number: BR-PFIZER INC-202201283121

PATIENT

DRUGS (1)
  1. DEPO-PROVERA [Suspect]
     Active Substance: MEDROXYPROGESTERONE ACETATE
     Indication: Contraception
     Dosage: UNK

REACTIONS (3)
  - Device breakage [Unknown]
  - Device leakage [Unknown]
  - Drug dose omission by device [Unknown]
